FAERS Safety Report 6753674-4 (Version None)
Quarter: 2010Q2

REPORT INFORMATION
  Report Type: 
  Country: None (occurrence: None)
  Receive Date: 20100603
  Receipt Date: 20100526
  Transmission Date: 20101027
  Serious: Yes (Other)
  Sender: FDA-Public Use
  Company Number: US-ASTRAZENECA-2010SE12566

PATIENT
  Age: 6 Year
  Sex: Male

DRUGS (4)
  1. PULMICORT [Suspect]
     Dosage: TWO INHALATIONS BID
     Route: 055
     Dates: start: 20050105
  2. PULMICORT [Suspect]
     Route: 055
     Dates: start: 20100310
  3. SINGULAIR [Concomitant]
     Indication: ASTHMA
     Dosage: 1 OD
     Route: 048
  4. ALBUTEROL [Concomitant]
     Indication: ASTHMA
     Route: 055
     Dates: start: 20050105

REACTIONS (2)
  - ADVERSE EVENT [None]
  - ASTHMA [None]
